FAERS Safety Report 7510401-0 (Version None)
Quarter: 2011Q2

REPORT INFORMATION
  Report Type: 
  Country: None (occurrence: None)
  Receive Date: 20110527
  Receipt Date: 20110516
  Transmission Date: 20111010
  Serious: Yes (Hospitalization)
  Sender: FDA-Public Use
  Company Number: FR-MERCK-1105USA02982

PATIENT
  Age: 51 Year
  Sex: Male

DRUGS (19)
  1. PRIMAXIN [Suspect]
     Route: 042
     Dates: start: 20101105, end: 20101110
  2. GELOX [Concomitant]
     Route: 048
     Dates: start: 20101021, end: 20101114
  3. AMBISOME [Suspect]
     Route: 042
     Dates: start: 20101109, end: 20101113
  4. OMEPRAZOLE [Suspect]
     Dosage: 20 MG DAILY (LONG TIME TREATMENT) THEN 40 MG DAILY
     Route: 048
     Dates: end: 20101115
  5. MYCOSTATIN [Concomitant]
     Route: 048
     Dates: start: 20101021, end: 20101114
  6. CIPROFLOXACIN HCL [Suspect]
     Route: 042
     Dates: start: 20101029, end: 20101110
  7. HEPARIN SODIUM [Concomitant]
     Route: 042
     Dates: start: 20101021, end: 20101119
  8. FLUCONAZOLE [Suspect]
     Indication: INFECTION PROPHYLAXIS
     Route: 048
     Dates: start: 20101008, end: 20101108
  9. SPASFON [Concomitant]
     Dosage: 2 TO 6 VIALS DAILY
     Route: 065
     Dates: start: 20101109, end: 20101112
  10. TARGOCID [Suspect]
     Route: 042
     Dates: start: 20101029, end: 20101113
  11. ZOVIRAX [Suspect]
     Indication: INFECTION PROPHYLAXIS
     Route: 042
     Dates: start: 20101021, end: 20101112
  12. PRIMPERAN TAB [Concomitant]
     Dosage: 1 VIAL TID
     Route: 065
     Dates: start: 20101024, end: 20101118
  13. PIPERACILLIN AND TAZOBACTAM [Suspect]
     Route: 042
     Dates: start: 20101029, end: 20101105
  14. GENTAMICIN [Concomitant]
     Route: 065
     Dates: start: 20101025, end: 20101119
  15. ONDANSERTRON HYDROCHLORIDE [Suspect]
     Indication: PREMEDICATION
     Dosage: 3 VIALS DAILY
     Route: 042
     Dates: start: 20100908, end: 20101101
  16. OXYCODONE HCL [Concomitant]
     Route: 065
     Dates: start: 20101031, end: 20101114
  17. COLIMYCIN [Concomitant]
     Route: 065
     Dates: start: 20101106, end: 20101115
  18. VALACYCLOVIR HYDROCHLORIDE [Concomitant]
     Indication: INFECTION PROPHYLAXIS
     Dosage: 500 MG BID THEN 500 MG/DAY
     Route: 065
     Dates: start: 20101007, end: 20101011
  19. CITALOPRAM HYDROBROMIDE [Suspect]
     Route: 048

REACTIONS (3)
  - CYTOLYTIC HEPATITIS [None]
  - CHOLESTASIS [None]
  - CONDITION AGGRAVATED [None]
